FAERS Safety Report 6108121-2 (Version None)
Quarter: 2009Q1

REPORT INFORMATION
  Report Type: 
  Country: None (occurrence: None)
  Receive Date: 20090304
  Receipt Date: 20080424
  Transmission Date: 20090719
  Serious: Yes (Hospitalization, Other)
  Sender: FDA-Public Use
  Company Number: US-000671

PATIENT
  Sex: Female

DRUGS (1)
  1. ISOVUE-370 [Suspect]
     Dosage: 100ML QD INTRAVENOUS
     Route: 042
     Dates: start: 20080422, end: 20080422

REACTIONS (2)
  - CARDIAC FAILURE CONGESTIVE [None]
  - LOSS OF CONSCIOUSNESS [None]
